FAERS Safety Report 9697605 (Version 2)
Quarter: 2014Q1

REPORT INFORMATION
  Report Type: Spontaneous
  Country: US (occurrence: US)
  Receive Date: 20131120
  Receipt Date: 20140108
  Transmission Date: 20141002
  Serious: No
  Sender: FDA-Public Use
  Company Number: US-PFIZER INC-2013326641

PATIENT
  Age: 46 Year
  Sex: Male

DRUGS (1)
  1. XALKORI [Suspect]
     Indication: LUNG NEOPLASM MALIGNANT
     Dosage: 250 MG, DAILY
     Route: 048
     Dates: start: 20130926

REACTIONS (3)
  - Drug intolerance [Unknown]
  - Abdominal discomfort [Unknown]
  - Diarrhoea [Unknown]
